FAERS Safety Report 14321281 (Version 4)
Quarter: 2019Q2

REPORT INFORMATION
  Report Type: Spontaneous
  Country: NL (occurrence: NL)
  Receive Date: 20171223
  Receipt Date: 20190402
  Transmission Date: 20190711
  Serious: Yes (Hospitalization, Other)
  Sender: FDA-Public Use
  Company Number: PHHY2017NL193015

PATIENT
  Age: 61 Year
  Sex: Female

DRUGS (3)
  1. ZOLEDRONIC ACID [Suspect]
     Active Substance: ZOLEDRONIC ACID
     Indication: BREAST CANCER
     Dosage: UNK
     Route: 042
  2. IMMUNOGLOBULIN IV [Concomitant]
     Active Substance: HUMAN IMMUNOGLOBULIN G
     Indication: CHRONIC INFLAMMATORY DEMYELINATING POLYRADICULONEUROPATHY
     Route: 042
  3. ANASTROZOLE. [Concomitant]
     Active Substance: ANASTROZOLE
     Indication: BREAST CANCER
     Route: 065

REACTIONS (19)
  - Chronic inflammatory demyelinating polyradiculoneuropathy [Recovering/Resolving]
  - Monoparesis [Recovering/Resolving]
  - Decreased vibratory sense [Recovering/Resolving]
  - Red blood cell sedimentation rate increased [Recovered/Resolved]
  - C-reactive protein increased [Recovered/Resolved]
  - Areflexia [Recovering/Resolving]
  - Romberg test positive [Unknown]
  - Myalgia [Recovering/Resolving]
  - Acute phase reaction [Recovered/Resolved]
  - Dysaesthesia [Not Recovered/Not Resolved]
  - Paraesthesia [Unknown]
  - Chills [Recovering/Resolving]
  - Mobility decreased [Recovering/Resolving]
  - Gait disturbance [Recovering/Resolving]
  - Hypersomnia [Unknown]
  - Off label use [Unknown]
  - Disease recurrence [Recovering/Resolving]
  - Fatigue [Recovering/Resolving]
  - Headache [Recovering/Resolving]
